FAERS Safety Report 17807548 (Version 1)
Quarter: 2020Q2

REPORT INFORMATION
  Report Type: Spontaneous
  Country: NL (occurrence: NL)
  Receive Date: 20200520
  Receipt Date: 20200520
  Transmission Date: 20200714
  Serious: Yes (Congenital Anomaly)
  Sender: FDA-Public Use
  Company Number: NL-MYLANLABS-2020M1048712

PATIENT

DRUGS (4)
  1. PREDNISONE. [Suspect]
     Active Substance: PREDNISONE
     Indication: PSORIATIC ARTHROPATHY
     Dosage: 1 DOSAGE FORM(ZO NODIG, ONREGELMATIG GEBRUIK)
     Route: 064
  2. TALTZ [Suspect]
     Active Substance: IXEKIZUMAB
     Indication: PSORIATIC ARTHROPATHY
     Dosage: 80MG/2WEKEN
     Route: 064
     Dates: start: 20191210, end: 20200121
  3. OMEPRAZOLE. [Suspect]
     Active Substance: OMEPRAZOLE
     Indication: PROPHYLAXIS AGAINST GASTROINTESTINAL ULCER
     Dosage: 1DD40MG
     Route: 064
  4. XELJANZ [Suspect]
     Active Substance: TOFACITINIB CITRATE
     Indication: PSORIATIC ARTHROPATHY
     Dosage: 5 MILLIGRAM(2DD5M)
     Route: 064
     Dates: start: 20191001, end: 20191101

REACTIONS (2)
  - Maternal exposure during pregnancy [Recovered/Resolved]
  - Spina bifida [Unknown]
